FAERS Safety Report 10188513 (Version 1)
Quarter: 2014Q2

REPORT INFORMATION
  Report Type: Spontaneous
  Country: PT (occurrence: None)
  Receive Date: 20140520
  Receipt Date: 20140520
  Transmission Date: 20141212
  Serious: Yes (Hospitalization)
  Sender: FDA-Public Use
  Company Number: 2014P1004054

PATIENT
  Age: 78 Year
  Sex: Female

DRUGS (13)
  1. VANCOMYCIN [Suspect]
     Indication: CYSTITIS BACTERIAL
     Route: 042
     Dates: start: 20140217, end: 20140221
  2. PREZISTA (DARUNAVIR ETHANOLATE) [Concomitant]
  3. NORVIR (RITONAVIR) [Concomitant]
  4. ESCITALOPRAM [Concomitant]
  5. LEVOTHYROXINE SODIUM [Concomitant]
  6. HALOPERIDOL [Concomitant]
  7. SEROQUEL (QUETIAPINE FUMARATE) [Concomitant]
  8. MIRTAZAPINE [Concomitant]
  9. ASPIRIN [Concomitant]
  10. ENALAPRIL [Concomitant]
  11. MONOPOTASSIUM PHOSPHATE [Concomitant]
  12. MAGNESIUM SULFATE [Concomitant]
  13. HYDROXYZINE [Concomitant]

REACTIONS (1)
  - Erythema multiforme [None]
